FAERS Safety Report 9051473 (Version 1)
Quarter: 2013Q1

REPORT INFORMATION
  Report Type: Spontaneous
  Country: US (occurrence: US)
  Receive Date: 20130206
  Receipt Date: 20130206
  Transmission Date: 20140127
  Serious: No
  Sender: FDA-Public Use
  Company Number: US-ALLERGAN-1213723US

PATIENT
  Sex: Female

DRUGS (6)
  1. RESTASIS [Suspect]
     Indication: DRY EYE
     Dosage: 2 GTT, BID
     Route: 047
     Dates: start: 20121002
  2. REFRESH P.M. [Concomitant]
     Indication: DRY EYE
     Dosage: UNK UNK, QPM
     Route: 047
  3. REFRESH PLUS [Concomitant]
     Indication: DRY EYE
     Dosage: UNK, PRN
     Route: 047
  4. XANAX [Concomitant]
     Indication: ANXIETY
     Dosage: 0.25 MG, PRN
     Route: 048
  5. PRILOSEC                           /00661201/ [Concomitant]
     Indication: GASTRIC DISORDER
     Dosage: 20 MG, UNK
     Route: 048
  6. PEPCID                             /00706001/ [Concomitant]
     Indication: GASTRIC DISORDER
     Dosage: 40 MG, QPM
     Route: 048

REACTIONS (2)
  - Incorrect dose administered [Unknown]
  - Vision blurred [Unknown]
